FAERS Safety Report 4759847-4 (Version None)
Quarter: 2005Q3

REPORT INFORMATION
  Report Type: 
  Country: None (occurrence: None)
  Receive Date: 20050831
  Receipt Date: 20050811
  Transmission Date: 20060218
  Serious: Yes (Disabling, Other)
  Sender: FDA-Public Use
  Company Number: US_0508120840

PATIENT
  Age: 26 Year
  Sex: Male

DRUGS (3)
  1. HUMULIN R [Suspect]
  2. HUMULIN R [Suspect]
     Dates: start: 19810101
  3. INSULIN [Suspect]
     Dates: start: 19690101

REACTIONS (2)
  - BLINDNESS [None]
  - DIABETIC RETINOPATHY [None]
